FAERS Safety Report 18166383 (Version 1)
Quarter: 2020Q3

REPORT INFORMATION
  Report Type: Other
  Country: GB (occurrence: GB)
  Receive Date: 20200819
  Receipt Date: 20200819
  Transmission Date: 20201103
  Serious: Yes (Disabling, Other)
  Sender: FDA-Public Use
  Company Number: GB-EMCURE PHARMACEUTICALS LTD-2020-EPL-001132

PATIENT
  Age: 85 Year
  Sex: Male
  Weight: 55.25 kg

DRUGS (6)
  1. SERTRALINE HYDROCHLORIDE. [Suspect]
     Active Substance: SERTRALINE HYDROCHLORIDE
     Indication: DEPRESSION
     Dosage: 100 MILLIGRAM, DAILY
     Route: 048
     Dates: start: 20190201, end: 20200515
  2. SUDOCREM [Concomitant]
     Active Substance: LANOLIN\ZINC OXIDE
     Dosage: APPLY AS BARRIER CREAM
     Dates: start: 20200527
  3. NUTRITIONAL SUPPLEMENT [Concomitant]
     Active Substance: DIETARY SUPPLEMENT
     Dosage: 114 GRAM,DAILY (WILL 100?200MLS WHOLE MILK)
     Dates: start: 20200720
  4. LANSOPRAZOLE. [Concomitant]
     Active Substance: LANSOPRAZOLE
     Dosage: 15 MILLIGRAM, DAILY
     Dates: start: 20200720
  5. LORAZEPAM. [Concomitant]
     Active Substance: LORAZEPAM
     Indication: AGITATION
     Dosage: 1 MILLIGRAM (ONE OR TWO UP TO TWICE DAILY (BD) IF NEEDED)
     Dates: start: 20200429
  6. DIPROBASE [Concomitant]
     Active Substance: CHLOROCRESOL
     Indication: DRY SKIN
     Dosage: 1 DOSAGE FORM(APPLY EVERY DAY TO DRY AREAS OF SKIN)
     Dates: start: 20200527

REACTIONS (3)
  - Cognitive disorder [Recovering/Resolving]
  - Dementia [Recovering/Resolving]
  - Confusional state [Recovered/Resolved]

NARRATIVE: CASE EVENT DATE: 20200201
